FAERS Safety Report 18388568 (Version 1)
Quarter: 2020Q4

REPORT INFORMATION
  Report Type: Report from Study
  Country: IT (occurrence: IT)
  Receive Date: 20201015
  Receipt Date: 20201015
  Transmission Date: 20210114
  Serious: Yes (Hospitalization)
  Sender: FDA-Public Use
  Company Number: IT-BAUSCH-BL-2020-028852

PATIENT
  Age: 45 Year
  Sex: Female

DRUGS (5)
  1. LIBRIUM [Suspect]
     Active Substance: CHLORDIAZEPOXIDE HYDROCHLORIDE
     Indication: DRUG ABUSE
     Dosage: IN TOTAL
     Route: 065
     Dates: start: 20200421, end: 20200421
  2. DIAZEPAM. [Suspect]
     Active Substance: DIAZEPAM
     Indication: DRUG ABUSE
     Route: 048
     Dates: start: 20200421, end: 20200421
  3. TEGRETOL [Suspect]
     Active Substance: CARBAMAZEPINE
     Indication: DRUG ABUSE
     Dosage: IN TOTAL
     Route: 065
     Dates: start: 20200421, end: 20200421
  4. RISPERIDONE. [Suspect]
     Active Substance: RISPERIDONE
     Indication: DRUG ABUSE
     Dosage: IN TOTAL
     Route: 048
     Dates: start: 20200421, end: 20200421
  5. PAROXETINE HYDROCHLORIDE. [Suspect]
     Active Substance: PAROXETINE HYDROCHLORIDE
     Indication: DRUG ABUSE
     Route: 065
     Dates: start: 20200421, end: 20200421

REACTIONS (2)
  - Drug abuse [Not Recovered/Not Resolved]
  - Sopor [Not Recovered/Not Resolved]

NARRATIVE: CASE EVENT DATE: 20200421
